FAERS Safety Report 11360250 (Version 1)
Quarter: 2015Q3

REPORT INFORMATION
  Report Type: Report from Study
  Country: US (occurrence: US)
  Receive Date: 20150810
  Receipt Date: 20150810
  Transmission Date: 20151125
  Serious: No
  Sender: FDA-Public Use
  Company Number: PHEH2014US011730

PATIENT
  Sex: Female

DRUGS (1)
  1. EXTAVIA [Suspect]
     Active Substance: INTERFERON BETA-1B
     Indication: MULTIPLE SCLEROSIS
     Dosage: 0.25 MG (1 ML), QOD
     Route: 058
     Dates: start: 20140625

REACTIONS (4)
  - Injection site pain [Recovering/Resolving]
  - Injection site haematoma [Not Recovered/Not Resolved]
  - Injection site erythema [Recovering/Resolving]
  - Injection site discomfort [Not Recovered/Not Resolved]
